FAERS Safety Report 8268716-7 (Version None)
Quarter: 2012Q2

REPORT INFORMATION
  Report Type: 
  Country: None (occurrence: None)
  Receive Date: 20120409
  Receipt Date: 20120326
  Transmission Date: 20120825
  Serious: Yes (Other)
  Sender: FDA-Public Use
  Company Number: JP-TEVA-330474ISR

PATIENT
  Age: 17 Year
  Sex: Female

DRUGS (16)
  1. DEXAMETHASONE [Suspect]
     Indication: ACUTE LYMPHOCYTIC LEUKAEMIA
     Dosage: 40 MG/KG/DAY ON DAYS 1-3
     Route: 065
  2. METHOTREXATE [Suspect]
     Dosage: 500 MG/M2/DAY
     Route: 065
  3. ITRACONAZOLE [Interacting]
     Indication: PROPHYLAXIS
     Route: 065
  4. ASPARAGINASE [Suspect]
     Indication: ACUTE LYMPHOCYTIC LEUKAEMIA
     Dosage: 3000 IU/M2/DAY
     Route: 065
  5. ETOPOSIDE [Suspect]
     Indication: ACUTE LYMPHOCYTIC LEUKAEMIA
     Dosage: 100 MG/M2/DAY ON DAYS 1-3
     Route: 065
  6. LEUCOVORIN CALCIUM [Suspect]
     Indication: ACUTE LYMPHOCYTIC LEUKAEMIA
     Route: 065
  7. MERCAPTOPURINE [Suspect]
     Indication: ACUTE LYMPHOCYTIC LEUKAEMIA
     Dosage: 25 MG/M2/DAY ON DAYS 1-21
     Route: 065
  8. CYTARABINE [Concomitant]
     Indication: ACUTE LYMPHOCYTIC LEUKAEMIA
     Dosage: 30 MG/M2/DAY ON DAYS 1, 8, 15 AND 22
     Route: 065
  9. CYTARABINE [Concomitant]
     Dosage: 2 G/M2/DAY
     Route: 065
  10. METHOTREXATE [Suspect]
     Indication: ACUTE LYMPHOCYTIC LEUKAEMIA
     Route: 037
  11. TACROLIMUS [Interacting]
     Indication: IMMUNOSUPPRESSION
     Route: 065
  12. VINCRISTINE [Concomitant]
     Dosage: 1.3 MG/M2/DAY
     Route: 065
  13. DEXAMETHASONE [Suspect]
     Route: 037
  14. VINCRISTINE [Concomitant]
     Indication: ACUTE LYMPHOCYTIC LEUKAEMIA
     Dosage: 1.3 MG/M2/DAY ON DAYS 1, 8, 15 AND 22
     Route: 065
  15. PREDNISOLONE [Concomitant]
     Indication: ACUTE LYMPHOCYTIC LEUKAEMIA
     Dosage: 60 MG/M2/DAY ON DAYS 1-7
     Route: 065
  16. DAUNORUBICIN HCL [Concomitant]
     Indication: ACUTE LYMPHOCYTIC LEUKAEMIA
     Dosage: 30 MG/M2/DAY ON DAYS 1-3
     Route: 065

REACTIONS (7)
  - DRUG LEVEL INCREASED [None]
  - RENAL DISORDER [None]
  - LEUKOENCEPHALOPATHY [None]
  - LIVER DISORDER [None]
  - SUBILEUS [None]
  - RASH [None]
  - HYPERGLYCAEMIA [None]
